FAERS Safety Report 7853760-1 (Version None)
Quarter: 2011Q4

REPORT INFORMATION
  Report Type: 
  Country: None (occurrence: None)
  Receive Date: 20111026
  Receipt Date: 20111021
  Transmission Date: 20120403
  Serious: Yes (Hospitalization)
  Sender: FDA-Public Use
  Company Number: US-ACTELION-A-US2011-55914

PATIENT

DRUGS (3)
  1. TRACLEER [Suspect]
     Indication: PULMONARY ARTERIAL HYPERTENSION
     Dosage: UNK MG, UNK
     Route: 048
     Dates: start: 20100303, end: 20110101
  2. REVATIO [Concomitant]
  3. TRACLEER [Suspect]
     Dosage: 125 MG, QD
     Route: 048
     Dates: start: 20110101

REACTIONS (2)
  - IMPLANTABLE DEFIBRILLATOR INSERTION [None]
  - CARDIAC ARREST [None]
